FAERS Safety Report 13427259 (Version 1)
Quarter: 2017Q2

REPORT INFORMATION
  Report Type: Report from Study
  Country: BR (occurrence: BR)
  Receive Date: 20170411
  Receipt Date: 20170411
  Transmission Date: 20170830
  Serious: Yes (Death)
  Sender: FDA-Public Use
  Company Number: PHHY2017BR054532

PATIENT
  Sex: Male

DRUGS (1)
  1. EXELON [Suspect]
     Active Substance: RIVASTIGMINE TARTRATE
     Indication: DEMENTIA ALZHEIMER^S TYPE
     Route: 048

REACTIONS (7)
  - Death [Fatal]
  - Vomiting [Unknown]
  - Memory impairment [Unknown]
  - Incorrect drug dosage form administered [Unknown]
  - Drug ineffective [Unknown]
  - Malaise [Unknown]
  - Hypersensitivity [Unknown]
